FAERS Safety Report 16259811 (Version 4)
Quarter: 2019Q2

REPORT INFORMATION
  Report Type: Spontaneous
  Country: ES (occurrence: ES)
  Receive Date: 20190501
  Receipt Date: 20190529
  Transmission Date: 20190711
  Serious: Yes (Other)
  Sender: FDA-Public Use
  Company Number: ES-ROCHE-2310013

PATIENT
  Sex: Female
  Weight: 65 kg

DRUGS (13)
  1. CISPLATIN. [Concomitant]
     Active Substance: CISPLATIN
     Route: 065
     Dates: start: 20160616, end: 20160927
  2. CARBOPLATIN. [Concomitant]
     Active Substance: CARBOPLATIN
     Dosage: FOR 1 DAY
     Route: 065
     Dates: start: 20181112
  3. VINORELBINE [Concomitant]
     Active Substance: VINORELBINE\VINORELBINE TARTRATE
     Route: 065
  4. PREDNISONE. [Concomitant]
     Active Substance: PREDNISONE
  5. VEPESIDE [Concomitant]
     Active Substance: ETOPOSIDE
     Dosage: FOR 3 DAYS
     Route: 065
     Dates: start: 20181112
  6. METHYLPREDNISOLONE. [Concomitant]
     Active Substance: METHYLPREDNISOLONE
     Route: 065
     Dates: start: 20160616, end: 20160927
  7. CYTARABINE. [Concomitant]
     Active Substance: CYTARABINE
     Route: 065
     Dates: start: 20160616, end: 20160927
  8. MABTHERA [Suspect]
     Active Substance: RITUXIMAB
     Dosage: RITUXIMAB RECEIVED ON 17/DEC/2018, 13/FEB/2019 AND 19/MAR/2019.
     Route: 042
     Dates: start: 20181112
  9. MABTHERA [Suspect]
     Active Substance: RITUXIMAB
     Indication: DIFFUSE LARGE B-CELL LYMPHOMA
     Route: 042
     Dates: start: 20160616, end: 20160927
  10. MESNA. [Concomitant]
     Active Substance: MESNA
     Dosage: FOR 1 DAY
     Route: 065
     Dates: start: 20181112
  11. ETOPOSIDE. [Concomitant]
     Active Substance: ETOPOSIDE
     Route: 065
     Dates: start: 20160616, end: 20160927
  12. IFOSFAMIDE. [Concomitant]
     Active Substance: IFOSFAMIDE
     Dosage: FOR 1 DAY
     Route: 065
     Dates: start: 20181112
  13. GEMCITABINE [Concomitant]
     Active Substance: GEMCITABINE\GEMCITABINE HYDROCHLORIDE
     Route: 065

REACTIONS (5)
  - Hemiparesis [Unknown]
  - Cerebrovascular accident [Unknown]
  - Seizure [Unknown]
  - Vena cava thrombosis [Unknown]
  - Transient ischaemic attack [Unknown]
